FAERS Safety Report 8472800-2 (Version None)
Quarter: 2012Q2

REPORT INFORMATION
  Report Type: 
  Country: None (occurrence: None)
  Receive Date: 20120622
  Receipt Date: 20120622
  Transmission Date: 20120825
  Serious: Yes (Death)
  Sender: FDA-Public Use
  Company Number: None

PATIENT
  Sex: Male
  Weight: 64.6 kg

DRUGS (5)
  1. DABIGATRAN  150MG [Suspect]
     Indication: ATRIAL FIBRILLATION
     Dosage: 150MG  TWICE A DAY  PO
     Route: 048
     Dates: start: 20110501, end: 20120519
  2. DABIGATRAN  150MG [Suspect]
     Indication: CEREBROVASCULAR ACCIDENT PROPHYLAXIS
     Dosage: 150MG  TWICE A DAY  PO
     Route: 048
     Dates: start: 20110501, end: 20120519
  3. AMIODARONE HCL [Suspect]
     Indication: ATRIAL FIBRILLATION
     Dosage: 200MG DAILY  PO
     Route: 048
     Dates: start: 20110701, end: 20120519
  4. METOPROLOLXL 50 MG [Concomitant]
  5. ASPIRIN [Concomitant]

REACTIONS (4)
  - HEMIPARESIS [None]
  - FALL [None]
  - CONTUSION [None]
  - HAEMORRHAGE [None]
